FAERS Safety Report 14102415 (Version 1)
Quarter: 2017Q4

REPORT INFORMATION
  Report Type: Spontaneous
  Country: MK (occurrence: MK)
  Receive Date: 20171018
  Receipt Date: 20171018
  Transmission Date: 20180321
  Serious: Yes (Other)
  Sender: FDA-Public Use
  Company Number: PHHY2017MK151935

PATIENT
  Age: 83 Year
  Sex: Female
  Weight: 75 kg

DRUGS (9)
  1. METILDIGOXIN [Suspect]
     Active Substance: METILDIGOXIN
     Indication: PRODUCT USED FOR UNKNOWN INDICATION
     Dosage: 0.1 MG, 1X1 EXCEPT ON WEEKENDS
     Route: 065
  2. METILDIGOXIN [Suspect]
     Active Substance: METILDIGOXIN
     Dosage: 0.1 MG, 1X1 FOR ONE MONTH, AFTER THAT 1X1 EVERY 2ND DAY, FOR 3 MONTHS
     Route: 065
  3. RANITIDINE. [Suspect]
     Active Substance: RANITIDINE
     Indication: PRODUCT USED FOR UNKNOWN INDICATION
     Dosage: 150 MG, 2X1
     Route: 065
  4. LOSARTAN. [Suspect]
     Active Substance: LOSARTAN
     Indication: PRODUCT USED FOR UNKNOWN INDICATION
     Dosage: 50 MG, 2X1
     Route: 065
  5. FUROSEMIDE. [Suspect]
     Active Substance: FUROSEMIDE
     Indication: OEDEMA
     Dosage: 500 MG,1X1/2 DURING 3 DAYS, AFTER THAT 1X1/4 UNTIL EDEMA AND BODY WEIGHT HAVE BEEN DECREASED
     Route: 065
  6. METILDIGOXIN [Suspect]
     Active Substance: METILDIGOXIN
     Dosage: 0.1 MG, 3X2 ON THE FIRST DAY, 3X1 ON THE 2ND, 3RD  AND 4TH DAY
     Route: 065
  7. ASA [Suspect]
     Active Substance: ASPIRIN
     Indication: PRODUCT USED FOR UNKNOWN INDICATION
     Route: 065
  8. FUROSEMIDE. [Suspect]
     Active Substance: FUROSEMIDE
     Indication: WEIGHT ABNORMAL
     Dosage: 40 MG, 1X1/2
     Route: 065
  9. ATENOLOL. [Suspect]
     Active Substance: ATENOLOL
     Indication: PRODUCT USED FOR UNKNOWN INDICATION
     Dosage: 100 MG, 1+0+1/2
     Route: 065

REACTIONS (31)
  - Heart valve calcification [Unknown]
  - Tricuspid valve incompetence [Unknown]
  - Arteriosclerosis [Unknown]
  - Pulmonary hypertension [Unknown]
  - Cardiomyopathy [Unknown]
  - Malaise [Unknown]
  - Heart rate irregular [Unknown]
  - Renal impairment [Unknown]
  - Pain [Unknown]
  - Breath sounds abnormal [Unknown]
  - Mitral valve incompetence [Unknown]
  - Cardiac failure chronic [Unknown]
  - Tachycardia [Unknown]
  - Oedema peripheral [Recovered/Resolved]
  - Atrial fibrillation [Unknown]
  - Dyspnoea [Unknown]
  - Anaemia [Unknown]
  - Cyanosis [Unknown]
  - Cardiac murmur [Unknown]
  - Pectus carinatum [Unknown]
  - Vasodilatation [Unknown]
  - Inferior vena cava dilatation [Unknown]
  - Arrhythmia [Unknown]
  - Pleural effusion [Unknown]
  - Tachypnoea [Unknown]
  - Fatigue [Unknown]
  - Mitral valve disease [Unknown]
  - Aortic valve incompetence [Unknown]
  - Blood pressure diastolic increased [Unknown]
  - Polyarthritis [Unknown]
  - Tachyarrhythmia [Unknown]
